FAERS Safety Report 23662906 (Version 2)
Quarter: 2025Q2

REPORT INFORMATION
  Report Type: Spontaneous
  Country: GB (occurrence: GB)
  Receive Date: 20240322
  Receipt Date: 20250408
  Transmission Date: 20250717
  Serious: Yes (Other)
  Sender: RANBAXY
  Company Number: GB-MYLANLABS-2024M1018498

PATIENT
  Age: 12 Year
  Sex: Female

DRUGS (2)
  1. SERTRALINE [Suspect]
     Active Substance: SERTRALINE HYDROCHLORIDE
     Indication: Obsessive-compulsive disorder
     Dosage: 200 MILLIGRAM, QD
     Route: 065
     Dates: start: 202309
  2. MELATONIN [Concomitant]
     Active Substance: MELATONIN
     Indication: Insomnia
     Dosage: 4 MILLIGRAM, HS
     Route: 065

REACTIONS (4)
  - Pancreatitis [Not Recovered/Not Resolved]
  - Renal impairment [Unknown]
  - Malaise [Unknown]
  - Hepatic function abnormal [Unknown]
